FAERS Safety Report 19401239 (Version 5)
Quarter: 2024Q4

REPORT INFORMATION
  Report Type: Report from Study
  Country: US (occurrence: US)
  Receive Date: 20210610
  Receipt Date: 20241016
  Transmission Date: 20250114
  Serious: No
  Sender: NOVARTIS
  Company Number: US-NOVARTISTESTPH-NVSC2021US130049

PATIENT
  Sex: Female

DRUGS (1)
  1. COSENTYX [Suspect]
     Active Substance: SECUKINUMAB
     Indication: Ankylosing spondylitis
     Dosage: 150 MG (STARTED A YEAR AGO, 1ML)
     Route: 058

REACTIONS (4)
  - Gastrointestinal disorder [Unknown]
  - Speech disorder [Unknown]
  - Illness [Unknown]
  - Pain [Unknown]
